FAERS Safety Report 5013418-3 (Version None)
Quarter: 2006Q2

REPORT INFORMATION
  Report Type: 
  Country: None (occurrence: None)
  Receive Date: 20060530
  Receipt Date: 20060519
  Transmission Date: 20061013
  Serious: Yes (Other)
  Sender: FDA-Public Use
  Company Number: DE-JNJFOC-20060504470

PATIENT
  Age: 80 Year
  Sex: Female

DRUGS (6)
  1. DURAGESIC-100 [Suspect]
     Indication: DRUG USE FOR UNKNOWN INDICATION
     Route: 062
  2. ENALAPRIL [Concomitant]
     Route: 065
  3. NORVASC [Concomitant]
     Route: 065
  4. CONCOR [Concomitant]
     Route: 065
  5. MADOPAR [Concomitant]
     Route: 065
  6. MADOPAR [Concomitant]
     Route: 065

REACTIONS (1)
  - GASTRIC ULCER HAEMORRHAGE [None]
